FAERS Safety Report 4931905-0 (Version None)
Quarter: 2006Q1

REPORT INFORMATION
  Report Type: 
  Country: None (occurrence: None)
  Receive Date: 20060303
  Receipt Date: 20060220
  Transmission Date: 20060701
  Serious: Yes (Hospitalization, Disabling)
  Sender: FDA-Public Use
  Company Number: US-MERCK-0602USA05097

PATIENT
  Age: 35 Year
  Sex: Male
  Weight: 98 kg

DRUGS (6)
  1. VIOXX [Suspect]
     Indication: PAIN IN EXTREMITY
     Route: 048
     Dates: start: 20010701, end: 20030501
  2. VIOXX [Suspect]
     Route: 048
     Dates: start: 20010701, end: 20030501
  3. VIOXX [Suspect]
     Route: 048
     Dates: start: 20010701, end: 20030501
  4. VIOXX [Suspect]
     Indication: ARTHRALGIA
     Route: 048
     Dates: start: 20010701, end: 20030501
  5. VIOXX [Suspect]
     Route: 048
     Dates: start: 20010701, end: 20030501
  6. VIOXX [Suspect]
     Route: 048
     Dates: start: 20010701, end: 20030501

REACTIONS (5)
  - BLOOD CHOLESTEROL INCREASED [None]
  - CARDIAC DISORDER [None]
  - CARDIAC FAILURE CONGESTIVE [None]
  - CEREBROVASCULAR ACCIDENT [None]
  - MYOCARDIAL INFARCTION [None]
